FAERS Safety Report 4301302-X (Version None)
Quarter: 2004Q1

REPORT INFORMATION
  Report Type: 
  Country: None (occurrence: None)
  Receive Date: 20040220
  Receipt Date: 20040220
  Transmission Date: 20041129
  Serious: Yes (Disabling)
  Sender: FDA-Public Use
  Company Number: None

PATIENT
  Age: 31 Year
  Sex: Male
  Weight: 86.1834 kg

DRUGS (2)
  1. GENTAMICIN [Suspect]
     Indication: ENTEROCOCCAL INFECTION
     Dosage: INFUSED
     Route: 042
     Dates: start: 20031118
  2. VANCOMYCIN [Suspect]
     Indication: BACTERAEMIA
     Dosage: INFUSED
     Dates: start: 20031231

REACTIONS (3)
  - ABASIA [None]
  - BALANCE DISORDER [None]
  - VERTIGO [None]
